FAERS Safety Report 10260166 (Version 1)
Quarter: 2014Q2

REPORT INFORMATION
  Report Type: Spontaneous
  Country: US (occurrence: US)
  Receive Date: 20140625
  Receipt Date: 20140625
  Transmission Date: 20141212
  Serious: No
  Sender: FDA-Public Use
  Company Number: US-B.I. PHARMACEUTICALS,INC./RIDGEFIELD-2014-BI-27219BP

PATIENT
  Sex: Male

DRUGS (3)
  1. COMBIVENT [Suspect]
     Indication: CHRONIC OBSTRUCTIVE PULMONARY DISEASE
     Dosage: DOSE PER APPLICATION: 20 MCG / 100 MCG; DAILY DOSE: 40MCG/200MCG
     Route: 055
     Dates: start: 201401
  2. VENTOLIN [Concomitant]
     Indication: CHRONIC OBSTRUCTIVE PULMONARY DISEASE
     Route: 055
  3. PREDNISONE [Concomitant]
     Indication: CHRONIC OBSTRUCTIVE PULMONARY DISEASE
     Dosage: 40 MG
     Route: 048

REACTIONS (5)
  - Wheezing [Not Recovered/Not Resolved]
  - Throat tightness [Not Recovered/Not Resolved]
  - Dysphonia [Not Recovered/Not Resolved]
  - Palpitations [Recovered/Resolved]
  - Oropharyngeal pain [Not Recovered/Not Resolved]
